FAERS Safety Report 16673945 (Version 2)
Quarter: 2019Q4

REPORT INFORMATION
  Report Type: Report from Study
  Country: FR (occurrence: FR)
  Receive Date: 20190806
  Receipt Date: 20191015
  Transmission Date: 20200122
  Serious: Yes (Other)
  Sender: FDA-Public Use
  Company Number: FR-JNJFOC-20190742069

PATIENT
  Age: 62 Year
  Sex: Male
  Weight: 97 kg

DRUGS (12)
  1. STELARA [Suspect]
     Active Substance: USTEKINUMAB
     Route: 058
     Dates: start: 20180717, end: 20190626
  2. BETAMETHASONE. [Concomitant]
     Active Substance: BETAMETHASONE
  3. TELMISARTAN. [Concomitant]
     Active Substance: TELMISARTAN
  4. STELARA [Suspect]
     Active Substance: USTEKINUMAB
     Route: 058
     Dates: start: 20150828, end: 20180717
  5. METHOTREXATE. [Concomitant]
     Active Substance: METHOTREXATE
     Route: 065
     Dates: start: 2000, end: 2002
  6. PARACETAMOL [Concomitant]
     Active Substance: ACETAMINOPHEN
  7. HYDROCORTISONE. [Concomitant]
     Active Substance: HYDROCORTISONE
  8. IBUPROFENE [Concomitant]
     Active Substance: IBUPROFEN
  9. KETODERM                           /00532501/ [Concomitant]
     Active Substance: KETOCONAZOLE
     Route: 065
     Dates: start: 201807
  10. STELARA [Suspect]
     Active Substance: USTEKINUMAB
     Route: 058
     Dates: end: 20190716
  11. HUMIRA [Concomitant]
     Active Substance: ADALIMUMAB
     Route: 058
     Dates: start: 201104, end: 20120215
  12. STELARA [Suspect]
     Active Substance: USTEKINUMAB
     Indication: PSORIASIS
     Route: 058
     Dates: start: 20140212, end: 20150828

REACTIONS (3)
  - Malignant glioma [Not Recovered/Not Resolved]
  - Off label use [Unknown]
  - Inappropriate schedule of product administration [Unknown]

NARRATIVE: CASE EVENT DATE: 20190624
